FAERS Safety Report 9232666 (Version 1)
Quarter: 2013Q2

REPORT INFORMATION
  Report Type: Spontaneous
  Country: US (occurrence: None)
  Receive Date: 20130415
  Receipt Date: 20130415
  Transmission Date: 20140414
  Serious: No
  Sender: FDA-Public Use
  Company Number: None

PATIENT
  Age: 56 Year
  Sex: Male
  Weight: 68.04 kg

DRUGS (1)
  1. CITALOPRAM [Suspect]
     Indication: DEPRESSION
     Dosage: X1 1/25/2013; STOPPED;X2 1/2 PILL 40 MG, 1X DAILY, PO
     Route: 048
     Dates: start: 20130125

REACTIONS (2)
  - Decreased appetite [None]
  - Abdominal rigidity [None]
